FAERS Safety Report 5610417-5 (Version None)
Quarter: 2008Q1

REPORT INFORMATION
  Report Type: 
  Country: None (occurrence: None)
  Receive Date: 20080128
  Receipt Date: 20080115
  Transmission Date: 20080703
  Serious: Yes (Other)
  Sender: FDA-Public Use
  Company Number: 8029076

PATIENT
  Sex: Female

DRUGS (1)
  1. KEPPRA [Suspect]

REACTIONS (1)
  - COAGULOPATHY [None]
